FAERS Safety Report 17649116 (Version 1)
Quarter: 2020Q2

REPORT INFORMATION
  Report Type: Spontaneous
  Country: US (occurrence: US)
  Receive Date: 20200409
  Receipt Date: 20200409
  Transmission Date: 20200713
  Serious: Yes (Other)
  Sender: FDA-Public Use
  Company Number: US-ELI_LILLY_AND_COMPANY-US202003014068

PATIENT
  Sex: Female

DRUGS (3)
  1. HUMALOG KWIKPEN [Suspect]
     Active Substance: INSULIN LISPRO
     Indication: PRODUCT USED FOR UNKNOWN INDICATION
     Dosage: 8 U, UNKNOWN(BEFORE MEAL)
     Route: 058
  2. TRESIBA [Concomitant]
     Active Substance: INSULIN DEGLUDEC
     Indication: PRODUCT USED FOR UNKNOWN INDICATION
  3. HUMALOG KWIKPEN [Suspect]
     Active Substance: INSULIN LISPRO
     Dosage: 5 U, UNKNOWN(BEFORE MEAL)
     Route: 058

REACTIONS (9)
  - Blood glucose decreased [Unknown]
  - Injection site pain [Unknown]
  - Weight decreased [Unknown]
  - Eye disorder [Unknown]
  - Myocardial infarction [Unknown]
  - Chest pain [Unknown]
  - Dry eye [Unknown]
  - Feeding disorder [Unknown]
  - Product dose omission [Unknown]
